FAERS Safety Report 14963187 (Version 1)
Quarter: 2018Q2

REPORT INFORMATION
  Report Type: Spontaneous
  Country: US (occurrence: US)
  Receive Date: 20180601
  Receipt Date: 20180601
  Transmission Date: 20180711
  Serious: No
  Sender: FDA-Public Use
  Company Number: US-GLAXOSMITHKLINE-US2018094058

PATIENT
  Age: 76 Year
  Sex: Female

DRUGS (4)
  1. FLOVENT [Suspect]
     Active Substance: FLUTICASONE PROPIONATE
     Indication: ASTHMA
     Dosage: 2 PUFF(S), BID
     Route: 055
  2. TIMOLOL. [Concomitant]
     Active Substance: TIMOLOL
  3. LUMIGAN [Concomitant]
     Active Substance: BIMATOPROST
  4. PROAIR HFA [Concomitant]
     Active Substance: ALBUTEROL SULFATE

REACTIONS (7)
  - Wrong technique in product usage process [Unknown]
  - Fall [Unknown]
  - Tooth fracture [Unknown]
  - Tongue discolouration [Recovering/Resolving]
  - Glossodynia [Recovering/Resolving]
  - Stomatitis [Unknown]
  - Tongue erythema [Recovered/Resolved]

NARRATIVE: CASE EVENT DATE: 201805
